FAERS Safety Report 5086007-2 (Version None)
Quarter: 2006Q3

REPORT INFORMATION
  Report Type: 
  Country: None (occurrence: None)
  Receive Date: 20060817
  Receipt Date: 20060703
  Transmission Date: 20061208
  Serious: Yes (Hospitalization)
  Sender: FDA-Public Use
  Company Number: B0430155A

PATIENT
  Age: 25 Year
  Sex: Male

DRUGS (1)
  1. FLOLAN [Suspect]
     Indication: DRUG USE FOR UNKNOWN INDICATION
     Dosage: INTRAVENOUS
     Route: 042

REACTIONS (9)
  - CARDIOMEGALY [None]
  - DYSPNOEA [None]
  - HEPATIC CONGESTION [None]
  - HYPERBILIRUBINAEMIA [None]
  - LIVER DISORDER [None]
  - PULMONARY ARTERIAL PRESSURE DECREASED [None]
  - RENAL DISORDER [None]
  - THROMBOCYTOPENIA [None]
  - WEIGHT INCREASED [None]
